FAERS Safety Report 20087142 (Version 28)
Quarter: 2025Q2

REPORT INFORMATION
  Report Type: Report from Study
  Country: US (occurrence: US)
  Receive Date: 20211118
  Receipt Date: 20250610
  Transmission Date: 20250717
  Serious: Yes (Hospitalization, Other)
  Sender: TAKEDA
  Company Number: US-TAKEDA-2021TUS058101

PATIENT
  Age: 72 Year
  Sex: Female
  Weight: 87.982 kg

DRUGS (49)
  1. HUMAN IMMUNOGLOBULIN G [Suspect]
     Active Substance: HUMAN IMMUNOGLOBULIN G
     Indication: Immunodeficiency common variable
     Dosage: 8 GRAM, 1/WEEK
  2. HUMAN IMMUNOGLOBULIN G [Suspect]
     Active Substance: HUMAN IMMUNOGLOBULIN G
     Dosage: 10 GRAM, 1/WEEK
  3. LYSODREN [Suspect]
     Active Substance: MITOTANE
     Indication: Product used for unknown indication
  4. BACTRIM [Suspect]
     Active Substance: SULFAMETHOXAZOLE\TRIMETHOPRIM
     Indication: Product used for unknown indication
  5. KEYTRUDA [Suspect]
     Active Substance: PEMBROLIZUMAB
     Indication: Product used for unknown indication
  6. FAMOTIDINE [Concomitant]
     Active Substance: FAMOTIDINE
  7. CIPRO [Concomitant]
     Active Substance: CIPROFLOXACIN HYDROCHLORIDE
  8. MUPIROCIN [Concomitant]
     Active Substance: MUPIROCIN
  9. ACETAMINOPHEN [Concomitant]
     Active Substance: ACETAMINOPHEN
  10. DIPHENHYDRAMINE [Concomitant]
     Active Substance: DIPHENHYDRAMINE
  11. LIDOCAINE [Concomitant]
     Active Substance: LIDOCAINE
  12. EPINEPHRINE [Concomitant]
     Active Substance: EPINEPHRINE
  13. CYMBALTA [Concomitant]
     Active Substance: DULOXETINE HYDROCHLORIDE
  14. SYNTHROID [Concomitant]
     Active Substance: LEVOTHYROXINE SODIUM
  15. CLOBETASOL PROPIONATE [Concomitant]
     Active Substance: CLOBETASOL PROPIONATE
  16. WELLBUTRIN XL [Concomitant]
     Active Substance: BUPROPION HYDROCHLORIDE
  17. CRESTOR [Concomitant]
     Active Substance: ROSUVASTATIN CALCIUM
  18. OLOPATADINE HYDROCHLORIDE [Concomitant]
     Active Substance: OLOPATADINE HYDROCHLORIDE
  19. FLUTICASONE PROPIONATE [Concomitant]
     Active Substance: FLUTICASONE PROPIONATE
  20. VITAMIN D3 [Concomitant]
     Active Substance: CHOLECALCIFEROL
  21. LOSARTAN [Concomitant]
     Active Substance: LOSARTAN
  22. METFORMIN HYDROCHLORIDE [Concomitant]
     Active Substance: METFORMIN HYDROCHLORIDE
  23. VESICARE [Concomitant]
     Active Substance: SOLIFENACIN SUCCINATE
  24. OMEPRAZOLE [Concomitant]
     Active Substance: OMEPRAZOLE
  25. CLOBETASOL [Concomitant]
     Active Substance: CLOBETASOL
  26. ALLEGRA ALLERGY [Concomitant]
     Active Substance: FEXOFENADINE HYDROCHLORIDE
  27. PRADAXA [Concomitant]
     Active Substance: DABIGATRAN ETEXILATE MESYLATE
  28. AMLODIPINE BESYLATE [Concomitant]
     Active Substance: AMLODIPINE BESYLATE
  29. INTRAROSA [Concomitant]
     Active Substance: PRASTERONE
  30. SOLIFENACIN SUCCINATE [Concomitant]
     Active Substance: SOLIFENACIN SUCCINATE
  31. HYDROCORTISONE [Concomitant]
     Active Substance: HYDROCORTISONE
  32. FLUOCINOLONE ACETONIDE [Concomitant]
     Active Substance: FLUOCINOLONE ACETONIDE
  33. ALBUTEROL SULFATE [Concomitant]
     Active Substance: ALBUTEROL SULFATE
  34. LEVOTHYROXINE SODIUM [Concomitant]
     Active Substance: LEVOTHYROXINE SODIUM
  35. FEXOFENADINE HYDROCHLORIDE [Concomitant]
     Active Substance: FEXOFENADINE HYDROCHLORIDE
  36. ROSUVASTATIN CALCIUM [Concomitant]
     Active Substance: ROSUVASTATIN CALCIUM
  37. SOLU-CORTEF [Concomitant]
     Active Substance: HYDROCORTISONE SODIUM SUCCINATE
  38. DIPHENHYDRAMINE HYDROCHLORIDE [Concomitant]
     Active Substance: DIPHENHYDRAMINE HYDROCHLORIDE
  39. ARTIFICIAL TEAR [Concomitant]
     Active Substance: LANOLIN\MINERAL OIL\PETROLATUM
  40. ESTRADIOL [Concomitant]
     Active Substance: ESTRADIOL
  41. TYLENOL EXTRA STRENGTH [Concomitant]
     Active Substance: ACETAMINOPHEN
  42. ROSUVASTATIN [Concomitant]
     Active Substance: ROSUVASTATIN
  43. LEVOTHYROXINE [Concomitant]
     Active Substance: LEVOTHYROXINE
  44. FEXOFENADINE [Concomitant]
     Active Substance: FEXOFENADINE HYDROCHLORIDE
  45. FLUTICASONE [Concomitant]
     Active Substance: FLUTICASONE
  46. METFORMIN [Concomitant]
     Active Substance: METFORMIN HYDROCHLORIDE
  47. FISH OIL [Concomitant]
     Active Substance: FISH OIL
  48. CORTEF [Concomitant]
     Active Substance: HYDROCORTISONE
  49. CABOMETYX [Concomitant]
     Active Substance: CABOZANTINIB S-MALATE

REACTIONS (39)
  - COVID-19 pneumonia [Unknown]
  - Pneumonia [Unknown]
  - Infection [Unknown]
  - Neoplasm malignant [Unknown]
  - Adrenal gland cancer [Unknown]
  - Sluggishness [Unknown]
  - Weight decreased [Unknown]
  - Urinary tract infection [Unknown]
  - Bronchitis [Unknown]
  - Nasopharyngitis [Unknown]
  - Sinus disorder [Unknown]
  - Vaginal infection [Unknown]
  - Discomfort [Unknown]
  - Multiple allergies [Unknown]
  - Feeding disorder [Unknown]
  - Respiratory disorder [Unknown]
  - Fungal infection [Unknown]
  - Bacterial vaginosis [Unknown]
  - Ear infection [Unknown]
  - Seasonal allergy [Unknown]
  - Tooth disorder [Unknown]
  - Upper-airway cough syndrome [Unknown]
  - Product dose omission issue [Unknown]
  - Drug hypersensitivity [Unknown]
  - Weight increased [Unknown]
  - Upper respiratory tract infection [Not Recovered/Not Resolved]
  - Sinusitis [Not Recovered/Not Resolved]
  - Infusion site bruising [Unknown]
  - Swelling [Unknown]
  - Cold sweat [Unknown]
  - Pain [Unknown]
  - Rash [Unknown]
  - Burning sensation [Unknown]
  - Cough [Unknown]
  - Infusion site pruritus [Unknown]
  - Infusion site pain [Unknown]
  - Diarrhoea [Unknown]
  - Fatigue [Unknown]
  - Dizziness [Unknown]

NARRATIVE: CASE EVENT DATE: 20241203
